FAERS Safety Report 15286479 (Version 1)
Quarter: 2018Q3

REPORT INFORMATION
  Report Type: Spontaneous
  Country: DE (occurrence: DE)
  Receive Date: 20180816
  Receipt Date: 20180816
  Transmission Date: 20181010
  Serious: Yes (Death, Other)
  Sender: FDA-Public Use
  Company Number: PHHY2017DE151203

PATIENT
  Age: 57 Year
  Sex: Male

DRUGS (3)
  1. HYDROXYUREA. [Suspect]
     Active Substance: HYDROXYUREA
     Indication: CHRONIC MYELOID LEUKAEMIA
     Dosage: UNK
     Route: 065
  2. IMATINIB [Suspect]
     Active Substance: IMATINIB
     Indication: CHRONIC MYELOID LEUKAEMIA
  3. IMATINIB [Suspect]
     Active Substance: IMATINIB
     Indication: SYSTEMIC SCLERODERMA
     Dosage: UNK
     Route: 065

REACTIONS (9)
  - White blood cell count decreased [Unknown]
  - Blast crisis in myelogenous leukaemia [Unknown]
  - Thrombocytopenia [Unknown]
  - Pelvic pain [Unknown]
  - Blood lactate dehydrogenase increased [Unknown]
  - C-reactive protein increased [Unknown]
  - Normocytic anaemia [Unknown]
  - Pyrexia [Unknown]
  - Multiple organ dysfunction syndrome [Fatal]
